FAERS Safety Report 25562910 (Version 1)
Quarter: 2025Q3

REPORT INFORMATION
  Report Type: Spontaneous
  Country: JP (occurrence: JP)
  Receive Date: 20250716
  Receipt Date: 20250716
  Transmission Date: 20251020
  Serious: Yes (Hospitalization)
  Sender: DR REDDYS
  Company Number: JP-HALEON-2250526

PATIENT
  Age: 6 Decade
  Sex: Female

DRUGS (2)
  1. NICOTINELL [Suspect]
     Active Substance: NICOTINE
     Indication: Smoking cessation therapy
     Route: 062
     Dates: start: 20250520
  2. NICOTINELL [Suspect]
     Active Substance: NICOTINE
     Route: 062
     Dates: start: 20250520

REACTIONS (2)
  - Hospitalisation [Unknown]
  - Product use issue [Unknown]
